FAERS Safety Report 4591484-7 (Version None)
Quarter: 2005Q1

REPORT INFORMATION
  Report Type: 
  Country: None (occurrence: None)
  Receive Date: 20050222
  Receipt Date: 20050209
  Transmission Date: 20050727
  Serious: Yes (Congenital Anomaly)
  Sender: FDA-Public Use
  Company Number: 2005-0008034

PATIENT
  Sex: Male
  Weight: 2.1147 kg

DRUGS (7)
  1. VIREAD [Suspect]
     Indication: HIV INFECTION
     Dosage: 300 MG, 1 IN 1 D, ORAL
     Route: 048
     Dates: start: 20040804, end: 20041122
  2. COMBIVIR [Concomitant]
  3. TRIZIVIR [Concomitant]
  4. REYATAZ [Concomitant]
  5. VIRACEPT [Concomitant]
  6. RETROVIR [Concomitant]
  7. EPZICOM [Concomitant]

REACTIONS (4)
  - DRUG EXPOSURE DURING PREGNANCY [None]
  - NEONATAL DISORDER [None]
  - PIGMENTED NAEVUS [None]
  - PREMATURE BABY [None]
